FAERS Safety Report 21928180 (Version 1)
Quarter: 2023Q1

REPORT INFORMATION
  Report Type: Spontaneous
  Country: CA (occurrence: CA)
  Receive Date: 20230130
  Receipt Date: 20230130
  Transmission Date: 20230418
  Serious: Yes (Death, Other)
  Sender: FDA-Public Use
  Company Number: CA-AMGEN-CANSP2023009928

PATIENT

DRUGS (4)
  1. RITUXIMAB [Suspect]
     Active Substance: RITUXIMAB
     Indication: Post transplant lymphoproliferative disorder
     Dosage: 375 MILLIGRAM, QWK
     Route: 040
  2. FLUDARABINE [Concomitant]
     Active Substance: FLUDARABINE PHOSPHATE
     Indication: Product used for unknown indication
     Dosage: UNK
     Route: 065
  3. BUSULFAN [Concomitant]
     Active Substance: BUSULFAN
     Indication: Product used for unknown indication
     Dosage: UNK
     Route: 065
  4. METHOTREXATE [Concomitant]
     Active Substance: METHOTREXATE
     Indication: Prophylaxis
     Dosage: UNK
     Route: 065

REACTIONS (18)
  - Post procedural infection [Fatal]
  - Infection [Fatal]
  - Blood immunoglobulin M decreased [Unknown]
  - Blood immunoglobulin G decreased [Unknown]
  - Blood immunoglobulin A decreased [Unknown]
  - Neutropenia [Unknown]
  - Death [Fatal]
  - Post transplant lymphoproliferative disorder [Fatal]
  - Graft versus host disease [Unknown]
  - Acute graft versus host disease [Unknown]
  - Chronic graft versus host disease [Unknown]
  - Therapy non-responder [Unknown]
  - Lymphopenia [Unknown]
  - Viral infection [Unknown]
  - Bacterial infection [Unknown]
  - Fungal infection [Unknown]
  - Transplant failure [Unknown]
  - Off label use [Unknown]
